FAERS Safety Report 5741861-3 (Version None)
Quarter: 2008Q2

REPORT INFORMATION
  Report Type: 
  Country: None (occurrence: None)
  Receive Date: 20080519
  Receipt Date: 20080507
  Transmission Date: 20081010
  Serious: Yes (Other)
  Sender: FDA-Public Use
  Company Number: US-BAYER-200817860NA

PATIENT
  Age: 48 Year
  Sex: Female
  Weight: 54 kg

DRUGS (1)
  1. LEUKINE [Suspect]
     Indication: NEUTROPENIA
     Dosage: AS USED: 250 ?G
     Route: 058
     Dates: start: 20080327

REACTIONS (1)
  - SYNCOPE [None]
